FAERS Safety Report 7957042-9 (Version None)
Quarter: 2011Q4

REPORT INFORMATION
  Report Type: 
  Country: None (occurrence: None)
  Receive Date: 20111130
  Receipt Date: 20111115
  Transmission Date: 20120403
  Serious: Yes (Hospitalization, Other)
  Sender: FDA-Public Use
  Company Number: EU-2011-10133

PATIENT
  Sex: Male
  Weight: 92 kg

DRUGS (22)
  1. ENSURE PLUS (CARBOHYDRATES NOS, ELECTROLYTES NOS, FATTY ACIDS NOS, MIN [Concomitant]
  2. ACETAMINOPHEN [Concomitant]
  3. TOPOTECAN [Suspect]
     Indication: CHEMOTHERAPY
     Dosage: 4.25 MG MILLIGRAM(S), DAILY DOSE, ORAL
     Route: 048
     Dates: start: 20110705, end: 20110710
  4. DEXAMETHASONE [Concomitant]
  5. SAMSCA [Suspect]
     Indication: HYPONATRAEMIA
     Dosage: SEE IMAGE
     Route: 048
     Dates: start: 20110603, end: 20110624
  6. SAMSCA [Suspect]
     Indication: INAPPROPRIATE ANTIDIURETIC HORMONE SECRETION
     Dosage: SEE IMAGE
     Route: 048
     Dates: start: 20110603, end: 20110624
  7. SAMSCA [Suspect]
     Indication: HYPONATRAEMIA
     Dosage: SEE IMAGE
     Route: 048
     Dates: start: 20110624, end: 20110711
  8. SAMSCA [Suspect]
     Indication: INAPPROPRIATE ANTIDIURETIC HORMONE SECRETION
     Dosage: SEE IMAGE
     Route: 048
     Dates: start: 20110624, end: 20110711
  9. SAMSCA [Suspect]
     Indication: HYPONATRAEMIA
     Dosage: SEE IMAGE
     Route: 048
     Dates: start: 20110817, end: 20110826
  10. SAMSCA [Suspect]
     Indication: INAPPROPRIATE ANTIDIURETIC HORMONE SECRETION
     Dosage: SEE IMAGE
     Route: 048
     Dates: start: 20110817, end: 20110826
  11. SAMSCA [Suspect]
     Indication: HYPONATRAEMIA
     Dosage: SEE IMAGE
     Route: 048
     Dates: start: 20110813, end: 20110816
  12. SAMSCA [Suspect]
     Indication: INAPPROPRIATE ANTIDIURETIC HORMONE SECRETION
     Dosage: SEE IMAGE
     Route: 048
     Dates: start: 20110813, end: 20110816
  13. SAMSCA [Suspect]
     Indication: HYPONATRAEMIA
     Dosage: SEE IMAGE
     Route: 048
     Dates: start: 20110714, end: 20110812
  14. SAMSCA [Suspect]
     Indication: INAPPROPRIATE ANTIDIURETIC HORMONE SECRETION
     Dosage: SEE IMAGE
     Route: 048
     Dates: start: 20110714, end: 20110812
  15. BISOPROLOL FUMARATE [Concomitant]
  16. CYCLIZINE (CYCLIZINE) [Concomitant]
  17. ASPIRIN [Concomitant]
  18. RAMIPRIL [Concomitant]
  19. METOCLOPRAMIDE HCL [Concomitant]
  20. OMEPRAZOLE [Concomitant]
  21. SIMVASTATIN [Concomitant]
  22. DIHYDROCODEINE BITARTRATE INJ [Concomitant]

REACTIONS (9)
  - HYPONATRAEMIA [None]
  - PANCYTOPENIA [None]
  - VOMITING [None]
  - NEUTROPENIC SEPSIS [None]
  - HYPOKALAEMIA [None]
  - HYPOPHAGIA [None]
  - DISEASE RECURRENCE [None]
  - DEHYDRATION [None]
  - DRUG INEFFECTIVE [None]
